FAERS Safety Report 5752618-1 (Version None)
Quarter: 2008Q2

REPORT INFORMATION
  Report Type: 
  Country: None (occurrence: None)
  Receive Date: 20080527
  Receipt Date: 20080527
  Transmission Date: 20081010
  Serious: Yes (Other)
  Sender: FDA-Public Use
  Company Number: None

PATIENT
  Age: 62 Year
  Sex: Female
  Weight: 74.3899 kg

DRUGS (3)
  1. LISINOPRIL [Suspect]
     Indication: HYPERTENSION
     Dosage: 2.5 MG 1X PO
     Route: 048
     Dates: start: 20080303, end: 20080324
  2. TOPROL-XL [Concomitant]
  3. COREG [Concomitant]

REACTIONS (5)
  - BURNING SENSATION [None]
  - DYSSTASIA [None]
  - MUSCLE SPASMS [None]
  - MUSCULAR WEAKNESS [None]
  - PAIN IN EXTREMITY [None]
